FAERS Safety Report 9027901 (Version 2)
Quarter: 2013Q3

REPORT INFORMATION
  Report Type: Spontaneous
  Country: IT (occurrence: IT)
  Receive Date: 20130123
  Receipt Date: 20130930
  Transmission Date: 20140515
  Serious: Yes (Life-Threatening, Other)
  Sender: FDA-Public Use
  Company Number: IT-009507513-1301ITA009923

PATIENT
  Age: 70 Year
  Sex: Female

DRUGS (7)
  1. BRIDION [Suspect]
     Indication: NEUROMUSCULAR BLOCKADE
     Dosage: 120 MG, QD
     Route: 042
     Dates: start: 20130104, end: 20130104
  2. RANIDIL [Concomitant]
     Indication: PROPHYLAXIS AGAINST GASTROINTESTINAL ULCER
     Dosage: 100 MG, UNK
     Route: 042
     Dates: start: 20130104, end: 20130104
  3. CEFAZOLINA TEVA [Concomitant]
     Indication: ANTIBIOTIC PROPHYLAXIS
     Dosage: 5 G, UNK
     Route: 042
     Dates: start: 20130104, end: 20130104
  4. ESMERON [Concomitant]
     Indication: NEUROMUSCULAR BLOCKADE
     Dosage: 40 MG, UNK
     Route: 042
     Dates: start: 20130104, end: 20130104
  5. DIPRIVAN [Concomitant]
     Indication: GENERAL ANAESTHESIA
     Dosage: 100 MG, UNK
     Route: 042
     Dates: start: 20130104, end: 20130104
  6. FENTANEST [Concomitant]
     Indication: ANALGESIC THERAPY
     Dosage: 0.1 MG/2 ML
     Route: 042
     Dates: start: 20130104, end: 20130104
  7. SEVORANE [Concomitant]
     Indication: GENERAL ANAESTHESIA
     Dosage: 2.5 %, UNK
     Route: 055
     Dates: start: 20130104

REACTIONS (1)
  - Cardio-respiratory arrest [Recovered/Resolved]
